FAERS Safety Report 4795171-1 (Version None)
Quarter: 2005Q4

REPORT INFORMATION
  Report Type: 
  Country: None (occurrence: None)
  Receive Date: 20051006
  Receipt Date: 20050920
  Transmission Date: 20060501
  Serious: Yes (Hospitalization)
  Sender: FDA-Public Use
  Company Number: 2005VX000533

PATIENT
  Age: 53 Year
  Sex: Female

DRUGS (5)
  1. DALMANE [Suspect]
     Dosage: 30 MG; DAILY
     Dates: end: 20050812
  2. VALERIAN EXTRACT / HEBRAL EXTRACTS  NOS [Concomitant]
  3. .............. [Concomitant]
  4. HOP STROBILI [Concomitant]
  5. SERTRALINE [Concomitant]

REACTIONS (3)
  - CHOLESTASIS [None]
  - HEPATITIS [None]
  - LIVER SCAN ABNORMAL [None]
